FAERS Safety Report 21642637 (Version 4)
Quarter: 2024Q1

REPORT INFORMATION
  Report Type: Spontaneous
  Country: US (occurrence: US)
  Receive Date: 20221125
  Receipt Date: 20240223
  Transmission Date: 20240410
  Serious: Yes (Disabling, Other)
  Sender: FDA-Public Use
  Company Number: US-TEVA-2022-US-2829694

PATIENT
  Age: 6 Year
  Sex: Female

DRUGS (7)
  1. DOCETAXEL [Suspect]
     Active Substance: DOCETAXEL\DOCETAXEL ANHYDROUS
     Indication: Breast cancer
     Dosage: DOSAGE TEXT: C1-C5: 180 MG, C6: 170 MG, NUMBER OF CYCLE - 06, FREQUENCY- EVERY 3 WEEKS
     Route: 065
     Dates: start: 20190528, end: 20190910
  2. PROTONIX [Concomitant]
     Active Substance: PANTOPRAZOLE SODIUM
     Indication: Product used for unknown indication
     Route: 065
     Dates: start: 2015
  3. METOPROLOL [Concomitant]
     Active Substance: METOPROLOL
     Indication: Product used for unknown indication
     Route: 065
     Dates: start: 2015
  4. CARBOPLATIN [Suspect]
     Active Substance: CARBOPLATIN
     Indication: Hormone receptor negative HER2 positive breast cancer
     Dosage: DOSAGE TEXT: NUMBER OF CYCLE - 06, FREQUENCY- EVERY 3 WEEKS
     Route: 065
     Dates: start: 20190528, end: 20190910
  5. TRASTUZUMAB [Suspect]
     Active Substance: TRASTUZUMAB
     Indication: Hormone receptor negative HER2 positive breast cancer
     Dosage: DOSAGE TEXT: NUMBER OF CYCLE - 06, FREQUENCY- EVERY 3 WEEKS
     Route: 065
     Dates: start: 20190528, end: 20190910
  6. PERTUZUMAB [Suspect]
     Active Substance: PERTUZUMAB
     Indication: Hormone receptor negative HER2 positive breast cancer
     Dosage: DOSAGE TEXT: NUMBER OF CYCLE - 06, FREQUENCY- EVERY 3 WEEKS
     Route: 065
     Dates: start: 20190528, end: 20190910
  7. TAMOXIFEN [Concomitant]
     Active Substance: TAMOXIFEN
     Indication: Product used for unknown indication
     Route: 065
     Dates: start: 2015

REACTIONS (8)
  - Lacrimation increased [Not Recovered/Not Resolved]
  - Lacrimal structure injury [Not Recovered/Not Resolved]
  - Eye pruritus [Unknown]
  - Eye pain [Unknown]
  - Ocular hyperaemia [Unknown]
  - Vision blurred [Unknown]
  - Photophobia [Unknown]
  - Cataract [Not Recovered/Not Resolved]

NARRATIVE: CASE EVENT DATE: 20190801
